FAERS Safety Report 4620851-8 (Version None)
Quarter: 2005Q1

REPORT INFORMATION
  Report Type: 
  Country: None (occurrence: None)
  Receive Date: 20050325
  Receipt Date: 20050309
  Transmission Date: 20050727
  Serious: Yes (Death, Life-Threatening, Hospitalization)
  Sender: FDA-Public Use
  Company Number: F01200402772

PATIENT
  Age: 69 Year
  Sex: Female

DRUGS (4)
  1. OXALIPLATIN - SOLUTION - 130 MG/M2 [Suspect]
     Indication: NON-SMALL CELL LUNG CANCER
     Dosage: 130 MG/M2 Q3W, INTRAVENOUS NOS
     Route: 042
     Dates: start: 20040812, end: 20040812
  2. (GEMCITABINE) - SOLUTION - 750 MG/M2 [Suspect]
     Dosage: 750 MG/M2 Q3W, INTRAVENOUS NOS
     Route: 042
     Dates: start: 20040812, end: 20040812
  3. ULTRACET [Concomitant]
  4. MORPHINE SULFATE [Concomitant]

REACTIONS (20)
  - ANAEMIA [None]
  - BREATH SOUNDS DECREASED [None]
  - CONDUCTION DISORDER [None]
  - COUGH [None]
  - CRACKLES LUNG [None]
  - DRUG HYPERSENSITIVITY [None]
  - DYSPNOEA [None]
  - HAEMOPTYSIS [None]
  - HYPOKALAEMIA [None]
  - HYPOXIA [None]
  - INFECTION [None]
  - INFLAMMATION [None]
  - LUNG INFILTRATION [None]
  - NO THERAPEUTIC RESPONSE [None]
  - OPPORTUNISTIC INFECTION [None]
  - PNEUMOCYSTIS JIROVECI INFECTION [None]
  - PNEUMONITIS [None]
  - RESPIRATORY RATE INCREASED [None]
  - THROMBOCYTOPENIA [None]
  - VIRAL INFECTION [None]
